FAERS Safety Report 20694532 (Version 1)
Quarter: 2022Q2

REPORT INFORMATION
  Report Type: Spontaneous
  Country: DE (occurrence: DE)
  Receive Date: 20220411
  Receipt Date: 20220411
  Transmission Date: 20220721
  Serious: Yes (Hospitalization, Disabling, Other)
  Sender: FDA-Public Use
  Company Number: DE-DCGMA-21192750

PATIENT
  Sex: Female

DRUGS (1)
  1. PRADAXA [Suspect]
     Active Substance: DABIGATRAN ETEXILATE MESYLATE
     Indication: Atrial fibrillation
     Dosage: DAILY DOSE: 300 MG MILLGRAM(S) EVERY DAYS 2 SEPARATED DOSES
     Route: 048

REACTIONS (1)
  - Cerebral ischaemia [Recovered/Resolved]

NARRATIVE: CASE EVENT DATE: 20170117
